FAERS Safety Report 18079824 (Version 6)
Quarter: 2023Q1

REPORT INFORMATION
  Report Type: Report from Study
  Country: US (occurrence: US)
  Receive Date: 20200728
  Receipt Date: 20230210
  Transmission Date: 20230417
  Serious: No
  Sender: FDA-Public Use
  Company Number: None

PATIENT
  Age: 24 Year
  Sex: Female
  Weight: 69.6 kg

DRUGS (1)
  1. GILENYA [Suspect]
     Active Substance: FINGOLIMOD HYDROCHLORIDE
     Indication: Multiple sclerosis
     Dosage: 0.5 MG, QD
     Route: 048
     Dates: start: 2014, end: 20201024

REACTIONS (16)
  - Paranasal sinus discomfort [Unknown]
  - Nasal septum deviation [Unknown]
  - Haemorrhoids [Recovered/Resolved with Sequelae]
  - Vomiting [Unknown]
  - Blood glucose decreased [Unknown]
  - Paraesthesia [Unknown]
  - COVID-19 [Recovered/Resolved]
  - Oropharyngeal pain [Recovered/Resolved]
  - Nasal congestion [Recovered/Resolved]
  - Headache [Recovered/Resolved]
  - Sinusitis [Recovered/Resolved]
  - Illness [Unknown]
  - Pain in extremity [Unknown]
  - Tonsillitis [Unknown]
  - Ear infection [Unknown]
  - Back pain [Unknown]

NARRATIVE: CASE EVENT DATE: 20170601
